FAERS Safety Report 15175715 (Version 4)
Quarter: 2018Q4

REPORT INFORMATION
  Report Type: Spontaneous
  Country: US (occurrence: US)
  Receive Date: 20180720
  Receipt Date: 20181017
  Transmission Date: 20190204
  Serious: Yes (Death, Life-Threatening, Hospitalization, Other)
  Sender: FDA-Public Use
  Company Number: US-ACTELION-A-NJ2018-175520

PATIENT
  Age: 55 Year
  Sex: Male

DRUGS (21)
  1. CHRONULAC [Concomitant]
     Active Substance: LACTULOSE
     Dosage: UNK
     Dates: start: 20180613
  2. HEPARIN [Concomitant]
     Active Substance: HEPARIN SODIUM
     Dosage: UNK
     Dates: start: 20180613
  3. PROAMATINE [Concomitant]
     Active Substance: MIDODRINE HYDROCHLORIDE
     Dosage: UNK
     Dates: start: 20180613
  4. SANDOSTATIN [Concomitant]
     Active Substance: OCTREOTIDE ACETATE
     Dosage: UNK
     Dates: start: 20180613
  5. ANCEF [Concomitant]
     Active Substance: CEFAZOLIN SODIUM
     Dosage: UNK
     Dates: start: 20180613
  6. KLOR-CON [Concomitant]
     Active Substance: POTASSIUM CHLORIDE
     Dosage: UNK
     Dates: start: 20180613
  7. XIFAXAN [Concomitant]
     Active Substance: RIFAXIMIN
     Dosage: UNK
     Dates: start: 20180613
  8. LASIX [Concomitant]
     Active Substance: FUROSEMIDE
     Dosage: UNK
     Dates: start: 20180613
  9. VASOSTRICT [Concomitant]
     Active Substance: VASOPRESSIN
     Dosage: UNK
     Dates: start: 20180613
  10. OPSUMIT [Suspect]
     Active Substance: MACITENTAN
     Indication: PORTOPULMONARY HYPERTENSION
     Dosage: UNK
     Route: 048
     Dates: start: 20180607, end: 20180702
  11. PREVACID [Concomitant]
     Active Substance: LANSOPRAZOLE
     Dosage: UNK
     Dates: start: 20180613
  12. VANCOMYCIN [Concomitant]
     Active Substance: VANCOMYCIN
     Dosage: UNK
     Dates: start: 20180613
  13. ZOFRAN [Concomitant]
     Active Substance: ONDANSETRON HYDROCHLORIDE
     Dosage: UNK
     Dates: start: 20180613
  14. ZOSYN [Concomitant]
     Active Substance: PIPERACILLIN SODIUM\TAZOBACTAM SODIUM
     Dosage: UNK
     Dates: start: 20180613
  15. COMPAZINE [Concomitant]
     Active Substance: PROCHLORPERAZINE MALEATE
     Dosage: UNK
     Dates: start: 20180613
  16. PRECEDEX [Concomitant]
     Active Substance: DEXMEDETOMIDINE HYDROCHLORIDE
     Dosage: UNK
     Dates: start: 20180613
  17. ZAROXOLYN [Concomitant]
     Active Substance: METOLAZONE
     Dosage: UNK
     Dates: start: 20180613
  18. ADRENALIN [Concomitant]
     Active Substance: EPINEPHRINE
     Dosage: UNK
     Dates: start: 20180613
  19. ATIVAN [Concomitant]
     Active Substance: LORAZEPAM
     Dosage: UNK
     Dates: start: 20180613
  20. LEVOPHED [Concomitant]
     Active Substance: NOREPINEPHRINE BITARTRATE
     Dosage: UNK
     Dates: start: 20180613
  21. DEMADEX [Concomitant]
     Active Substance: TORSEMIDE
     Dosage: UNK
     Dates: start: 20180613

REACTIONS (16)
  - Blood bilirubin increased [Fatal]
  - Cardiac arrest [Fatal]
  - Blood albumin decreased [Unknown]
  - Dyspnoea [Unknown]
  - Portal hypertension [Unknown]
  - Confusional state [Unknown]
  - Prothrombin time prolonged [Unknown]
  - Hepatic encephalopathy [Fatal]
  - Vomiting [Fatal]
  - Jaundice [Fatal]
  - Blood alkaline phosphatase increased [Unknown]
  - International normalised ratio increased [Unknown]
  - Tremor [Unknown]
  - Alanine aminotransferase decreased [Unknown]
  - Hypotension [Not Recovered/Not Resolved]
  - Aspartate aminotransferase increased [Unknown]

NARRATIVE: CASE EVENT DATE: 20180613
